FAERS Safety Report 6292868-1 (Version None)
Quarter: 2009Q3

REPORT INFORMATION
  Report Type: 
  Country: None (occurrence: None)
  Receive Date: 20090731
  Receipt Date: 20090722
  Transmission Date: 20100115
  Serious: Yes (Hospitalization, Other)
  Sender: FDA-Public Use
  Company Number: PHHY2009JP26463

PATIENT
  Age: 57 Year
  Sex: Female

DRUGS (2)
  1. DIOVAN [Suspect]
     Indication: HYPERTENSION
     Dosage: 3920 MG
     Route: 048
  2. BENZODIAZEPINE DERIVATIVES [Concomitant]

REACTIONS (5)
  - DEPRESSED LEVEL OF CONSCIOUSNESS [None]
  - OVERDOSE [None]
  - PNEUMONIA ASPIRATION [None]
  - SUICIDE ATTEMPT [None]
  - VOMITING [None]
